FAERS Safety Report 21891740 (Version 1)
Quarter: 2023Q1

REPORT INFORMATION
  Report Type: Spontaneous
  Country: LU (occurrence: LU)
  Receive Date: 20230120
  Receipt Date: 20230120
  Transmission Date: 20230417
  Serious: Yes (Other)
  Sender: FDA-Public Use
  Company Number: None

PATIENT

DRUGS (1)
  1. BETAFERON [Suspect]
     Active Substance: INTERFERON BETA-1B
     Indication: Product used for unknown indication

REACTIONS (2)
  - Ataxia [Unknown]
  - Muscular weakness [Unknown]

NARRATIVE: CASE EVENT DATE: 19950101
